FAERS Safety Report 7571660-1 (Version None)
Quarter: 2011Q2

REPORT INFORMATION
  Report Type: 
  Country: None (occurrence: None)
  Receive Date: 20110624
  Receipt Date: 20110616
  Transmission Date: 20111010
  Serious: Yes (Hospitalization, Other)
  Sender: FDA-Public Use
  Company Number: NO-MERCK-1106NOR00003

PATIENT
  Age: 63 Year
  Sex: Male

DRUGS (8)
  1. LEVOTHYROXINE SODIUM [Concomitant]
     Route: 048
  2. ROSUVASTATIN CALCIUM [Concomitant]
     Route: 048
  3. PLENDIL [Concomitant]
     Route: 048
  4. AZATHIOPRINE [Concomitant]
     Route: 048
     Dates: end: 20110525
  5. OLSALAZINE SODIUM [Concomitant]
     Route: 048
  6. HYZAAR [Suspect]
     Route: 048
     Dates: start: 20110101, end: 20110506
  7. ASPIRIN AND MAGNESIUM OXIDE [Concomitant]
     Route: 048
  8. INSULIN HUMAN [Concomitant]
     Indication: DIABETES MELLITUS
     Route: 058

REACTIONS (1)
  - COLITIS ULCERATIVE [None]
